FAERS Safety Report 9633268 (Version 1)
Quarter: 2013Q4

REPORT INFORMATION
  Report Type: Report from Study
  Country: US (occurrence: US)
  Receive Date: 20131021
  Receipt Date: 20131021
  Transmission Date: 20140711
  Serious: Yes (Other)
  Sender: FDA-Public Use
  Company Number: PHEH2013US021556

PATIENT
  Sex: Male

DRUGS (1)
  1. GILENYA [Suspect]
     Indication: MULTIPLE SCLEROSIS
     Dosage: 0.5 MG, QD
     Route: 048
     Dates: start: 20120518

REACTIONS (7)
  - Quadriparesis [Unknown]
  - Insomnia [Unknown]
  - Muscle spasms [Unknown]
  - Muscle spasticity [Unknown]
  - Fatigue [Unknown]
  - Depression [Unknown]
  - Paraesthesia [Unknown]
